FAERS Safety Report 23280364 (Version 1)
Quarter: 2023Q4

REPORT INFORMATION
  Report Type: Spontaneous
  Country: US (occurrence: US)
  Receive Date: 20231210
  Receipt Date: 20231210
  Transmission Date: 20240110
  Serious: No
  Sender: FDA-Public Use
  Company Number: US-ABBVIE-5527378

PATIENT

DRUGS (2)
  1. VRAYLAR [Suspect]
     Active Substance: CARIPRAZINE
     Indication: Product used for unknown indication
     Route: 065
  2. VRAYLAR [Suspect]
     Active Substance: CARIPRAZINE
     Indication: Product used for unknown indication
     Route: 065

REACTIONS (14)
  - Anxiety [Unknown]
  - Chest discomfort [Unknown]
  - Feeling cold [Unknown]
  - Diarrhoea [Unknown]
  - Panic attack [Unknown]
  - Chest discomfort [Unknown]
  - Lung opacity [Unknown]
  - Dyspnoea [Unknown]
  - Feeling abnormal [Unknown]
  - Drug ineffective [Unknown]
  - Headache [Unknown]
  - Insomnia [Unknown]
  - Vomiting [Unknown]
  - Cold sweat [Unknown]
